FAERS Safety Report 12570582 (Version 2)
Quarter: 2016Q3

REPORT INFORMATION
  Report Type: Spontaneous
  Country: IT (occurrence: IT)
  Receive Date: 20160719
  Receipt Date: 20160804
  Transmission Date: 20161109
  Serious: Yes (Hospitalization, Other)
  Sender: FDA-Public Use
  Company Number: IT-PFIZER INC-3087615

PATIENT
  Age: 71 Year
  Sex: Male
  Weight: 80 kg

DRUGS (11)
  1. FLUOROURACIL. [Concomitant]
     Active Substance: FLUOROURACIL
     Dosage: 3400 MG, CYCLIC, CONTINUOUS INFUSION OF 48 HOURS; EVERY 14 DAYS
     Route: 041
     Dates: start: 20160301
  2. OXALIPLATIN. [Suspect]
     Active Substance: OXALIPLATIN
     Dosage: 85 MG/M2 OF BODY SURFACE, CYCLIC
     Route: 042
     Dates: start: 20151111, end: 20151111
  3. FLUOROURACIL. [Concomitant]
     Active Substance: FLUOROURACIL
     Dosage: 500 MG, CYCLIC, EVERY 14 DAYS
     Route: 040
     Dates: start: 20160301
  4. FLUOROURACIL. [Concomitant]
     Active Substance: FLUOROURACIL
     Dosage: UNK
  5. FLUOROURACIL. [Concomitant]
     Active Substance: FLUOROURACIL
     Indication: HETEROPLASIA
     Dosage: FREQ: CYCLICAL
     Dates: start: 20151014
  6. FLUOROURACIL. [Concomitant]
     Active Substance: FLUOROURACIL
     Dosage: 3400 MG, CYCLIC, EVERY 14 DAYS
     Dates: start: 20151111, end: 20151111
  7. FOLINIC ACID [Concomitant]
     Active Substance: LEUCOVORIN
     Indication: HETEROPLASIA
     Dosage: UNK, CYCLIC
     Dates: start: 20151014
  8. FLUOROURACIL. [Concomitant]
     Active Substance: FLUOROURACIL
     Dosage: 500 MG, CYCLIC
     Route: 040
     Dates: start: 20151111, end: 20151111
  9. OXALIPLATIN. [Suspect]
     Active Substance: OXALIPLATIN
     Indication: HETEROPLASIA
     Dosage: CYCLIC
     Dates: start: 20151014
  10. FOLINIC ACID [Concomitant]
     Active Substance: LEUCOVORIN
     Dosage: 300 MG, CYCLIC EVERY 14 DAYS
     Dates: start: 20160301
  11. FOLINIC ACID [Concomitant]
     Active Substance: LEUCOVORIN
     Dosage: 200 MG, CYCLIC EVERY 14 DAYS
     Dates: start: 20151111

REACTIONS (7)
  - Generalised tonic-clonic seizure [Recovered/Resolved]
  - Drug tolerance [Unknown]
  - Cognitive disorder [Unknown]
  - Leukopenia [Unknown]
  - Syncope [Recovered/Resolved]
  - Hypersensitivity [Unknown]
  - Loss of consciousness [Recovered/Resolved]

NARRATIVE: CASE EVENT DATE: 20151111
